FAERS Safety Report 21165396 (Version 1)
Quarter: 2022Q3

REPORT INFORMATION
  Report Type: 
  Country: None (occurrence: None)
  Receive Date: 20220803
  Receipt Date: 20220803
  Transmission Date: 20221027
  Serious: No
  Sender: FDA-Public Use
  Company Number: None

PATIENT
  Age: 16 Year
  Sex: Male

DRUGS (1)
  1. MYORISAN [Suspect]
     Active Substance: ISOTRETINOIN

REACTIONS (13)
  - Headache [Unknown]
  - Dizziness [Unknown]
  - Drug intolerance [Unknown]
  - Vertigo [Unknown]
  - Heat exhaustion [Unknown]
  - Temperature intolerance [Unknown]
  - Asthenia [Unknown]
  - Myalgia [Unknown]
  - Dehydration [Unknown]
  - Lip exfoliation [Unknown]
  - Lip swelling [Unknown]
  - Lip injury [Unknown]
  - Sensory disturbance [Unknown]
